FAERS Safety Report 4295144-1 (Version None)
Quarter: 2004Q1

REPORT INFORMATION
  Report Type: 
  Country: None (occurrence: None)
  Receive Date: 20040212
  Receipt Date: 20040127
  Transmission Date: 20041129
  Serious: Yes (Other)
  Sender: FDA-Public Use
  Company Number: 191757

PATIENT
  Sex: Female
  Weight: 86.1834 kg

DRUGS (3)
  1. AVONEX [Suspect]
     Indication: MULTIPLE SCLEROSIS
     Dosage: 30 MCG QW IM
     Route: 030
     Dates: start: 19981106, end: 20010901
  2. BLADDER MEDICATION (NOS) [Concomitant]
  3. PREDNISONE [Concomitant]

REACTIONS (2)
  - CHRONIC HEPATITIS [None]
  - RENAL DISORDER [None]
